FAERS Safety Report 8326739 (Version 3)
Quarter: 2013Q4

REPORT INFORMATION
  Report Type: Spontaneous
  Country: US (occurrence: None)
  Receive Date: 20111227
  Receipt Date: 20131212
  Transmission Date: 20140711
  Serious: Yes (Hospitalization, Other)
  Sender: FDA-Public Use
  Company Number: 2011-000024

PATIENT
  Sex: Female

DRUGS (16)
  1. ACTONEL (RISEDRONATE SODIUM) TABLET [Suspect]
  2. FOSAMAX [Suspect]
  3. BONIVA [Suspect]
     Dosage: INFUSION EVERY 3 MO, INTRAVENOUS
     Route: 042
     Dates: end: 200712
  4. RECLAST [Suspect]
     Dosage: ONCE YEARLY, INTRAVENOUS
     Route: 042
     Dates: start: 200803
  5. METHOTREXATE (METHOTREXATE) [Concomitant]
  6. LEVOTHYROXINE (LEVOTHYROXINE) [Concomitant]
  7. DIOVAN (VALSARTAN) [Concomitant]
  8. LUNESTA (ESZOPICLONE) [Concomitant]
  9. CITALOPRAM (CITALOPRAM) [Concomitant]
  10. ARTHROTEC (DICLOFENAC SODIUM, MISOPROSTOL) [Concomitant]
  11. OXYCODONE (OXYCODONE) [Concomitant]
  12. JUNEL (ETHINYLESTRADIOL, NORETHISTERONE ACETATE) [Concomitant]
  13. BECONASE AQ (BECLOMETASONE DIPROPIONATE) [Concomitant]
  14. FLUTICASONE (FLUTICASONE) [Concomitant]
  15. METRONIDAZOLE (METRONIDAZOLE) [Concomitant]
  16. FOLIC ACID (FOLIC ACID) [Concomitant]

REACTIONS (3)
  - Pathological fracture [None]
  - Femur fracture [None]
  - Pain [None]
